FAERS Safety Report 13801292 (Version 2)
Quarter: 2017Q4

REPORT INFORMATION
  Report Type: Spontaneous
  Country: US (occurrence: US)
  Receive Date: 20170727
  Receipt Date: 20171214
  Transmission Date: 20180320
  Serious: Yes (Death, Hospitalization)
  Sender: FDA-Public Use
  Company Number: US-JNJFOC-20170716785

PATIENT
  Age: 74 Year
  Sex: Female
  Weight: 82 kg

DRUGS (5)
  1. CRIZOTINIB [Suspect]
     Active Substance: CRIZOTINIB
     Indication: NON-SMALL CELL LUNG CANCER
     Dosage: (REPORTED ALSO AS 30-MAY-2017 PM LAST DOSE)
     Route: 048
     Dates: start: 20170526, end: 20170531
  2. CRIZOTINIB [Suspect]
     Active Substance: CRIZOTINIB
     Indication: NON-SMALL CELL LUNG CANCER
     Route: 048
     Dates: start: 20170602, end: 20170605
  3. CRIZOTINIB [Suspect]
     Active Substance: CRIZOTINIB
     Indication: NON-SMALL CELL LUNG CANCER
     Route: 048
     Dates: start: 20170425
  4. XARELTO [Suspect]
     Active Substance: RIVAROXABAN
     Indication: ATRIAL FIBRILLATION
     Route: 048
  5. XARELTO [Suspect]
     Active Substance: RIVAROXABAN
     Indication: CEREBROVASCULAR ACCIDENT PROPHYLAXIS
     Route: 048

REACTIONS (11)
  - Oesophageal haemorrhage [Recovered/Resolved with Sequelae]
  - Neoplasm progression [Fatal]
  - Chest pain [Unknown]
  - Vomiting [Unknown]
  - Fall [Unknown]
  - Upper respiratory tract infection [Unknown]
  - Nausea [Unknown]
  - Pleural effusion [Recovered/Resolved with Sequelae]
  - Abdominal pain [Unknown]
  - Pneumonia [Unknown]
  - Pain [Unknown]

NARRATIVE: CASE EVENT DATE: 20170522
